FAERS Safety Report 13113389 (Version 1)
Quarter: 2017Q1

REPORT INFORMATION
  Report Type: Spontaneous
  Country: None (occurrence: US)
  Receive Date: 20170113
  Receipt Date: 20170113
  Transmission Date: 20170428
  Serious: Yes (Hospitalization)
  Sender: FDA-Public Use
  Company Number: None

PATIENT
  Age: 55 Year
  Sex: Male
  Weight: 84.4 kg

DRUGS (2)
  1. CARBOPLATIN. [Concomitant]
     Active Substance: CARBOPLATIN
  2. MEMANTINE HYDROCHLORIDE. [Suspect]
     Active Substance: MEMANTINE HYDROCHLORIDE
     Dates: end: 20160109

REACTIONS (7)
  - Blood calcium decreased [None]
  - Mental status changes [None]
  - Fatigue [None]
  - Vasogenic cerebral oedema [None]
  - Asthenia [None]
  - Hypotension [None]
  - Hypokalaemia [None]

NARRATIVE: CASE EVENT DATE: 20170109
